FAERS Safety Report 9015213 (Version 2)
Quarter: 2013Q1

REPORT INFORMATION
  Report Type: Spontaneous
  Country: JP (occurrence: JP)
  Receive Date: 20130116
  Receipt Date: 20130201
  Transmission Date: 20140127
  Serious: Yes (Hospitalization, Other)
  Sender: FDA-Public Use
  Company Number: JP-RANBAXY-2013RR-63975

PATIENT
  Age: 4 Year
  Sex: Male

DRUGS (6)
  1. GABAPENTIN [Suspect]
     Indication: EPILEPSY
     Dosage: UNK
     Route: 065
  2. VALPROIC ACID [Suspect]
     Indication: EPILEPSY
     Dosage: UNK
     Route: 065
  3. RISPERIDONE [Suspect]
     Indication: EPILEPSY
     Dosage: UNK
     Route: 065
  4. CLONAZEPAM [Suspect]
     Indication: EPILEPSY
     Dosage: UNK
     Route: 065
  5. PHENYTOIN [Suspect]
     Indication: EPILEPSY
     Dosage: UNK
     Route: 065
  6. ZONISAMIDE [Suspect]
     Indication: EPILEPSY
     Dosage: UNK
     Route: 065

REACTIONS (1)
  - Toxic epidermal necrolysis [Recovering/Resolving]
